FAERS Safety Report 4280481-7 (Version None)
Quarter: 2004Q1

REPORT INFORMATION
  Report Type: 
  Country: None (occurrence: None)
  Receive Date: 20040127
  Receipt Date: 20040115
  Transmission Date: 20041129
  Serious: Yes (Hospitalization)
  Sender: FDA-Public Use
  Company Number: 2003116647

PATIENT
  Age: 59 Year
  Sex: Female

DRUGS (5)
  1. DIFLUCAN [Suspect]
     Indication: SYSTEMIC CANDIDA
     Dosage: 200 MG, DAILY, INTRAVENOUS
     Route: 042
     Dates: start: 20031031, end: 20031104
  2. VANCOMYCIN HYDROCHLORIDE [Suspect]
     Indication: CLOSTRIDIUM COLITIS
     Dosage: 1 GRAM, DAILY, ORAL
     Route: 048
     Dates: start: 20031021, end: 20031025
  3. FOSFOMYCIN CALCIUM [Suspect]
     Indication: PERITONITIS
     Dosage: 2 GRAM, BID, INTRAVENOUS
     Route: 042
     Dates: start: 20031020, end: 20031031
  4. IMMUNOGLOBULIN HUMAN NORMAL [Concomitant]
  5. PLASMA PROTEIN FRACTION (HUMAN) [Concomitant]

REACTIONS (14)
  - ASPARTATE AMINOTRANSFERASE INCREASED [None]
  - BLOOD CHLORIDE DECREASED [None]
  - BLOOD LACTATE DEHYDROGENASE INCREASED [None]
  - BLOOD POTASSIUM DECREASED [None]
  - BLOOD SODIUM INCREASED [None]
  - DEPRESSED LEVEL OF CONSCIOUSNESS [None]
  - DIFFERENTIAL WHITE BLOOD CELL COUNT ABNORMAL [None]
  - GASTROINTESTINAL NECROSIS [None]
  - HISTIOCYTOSIS HAEMATOPHAGIC [None]
  - HYPERCALCAEMIA [None]
  - ILEUS [None]
  - LYMPHOMA [None]
  - PERITONITIS [None]
  - PLATELET COUNT DECREASED [None]
